FAERS Safety Report 21651574 (Version 1)
Quarter: 2022Q4

REPORT INFORMATION
  Report Type: Report from Study
  Country: US (occurrence: US)
  Receive Date: 20221128
  Receipt Date: 20221128
  Transmission Date: 20230113
  Serious: Yes (Other)
  Sender: FDA-Public Use
  Company Number: US-OTSUKA-2022_052749

PATIENT
  Sex: Male
  Weight: 57.06 kg

DRUGS (1)
  1. CEDAZURIDINE\DECITABINE [Suspect]
     Active Substance: CEDAZURIDINE\DECITABINE
     Indication: Myelodysplastic syndrome
     Dosage: 1 DF, QD (DAYS 1-5) OF EACH 28-DAY CYCLE
     Route: 048
     Dates: start: 20221026

REACTIONS (1)
  - Transfusion [Unknown]
